FAERS Safety Report 13231949 (Version 1)
Quarter: 2017Q1

REPORT INFORMATION
  Report Type: Spontaneous
  Country: CA (occurrence: CA)
  Receive Date: 20170214
  Receipt Date: 20170214
  Transmission Date: 20170428
  Serious: Yes (Other)
  Sender: FDA-Public Use
  Company Number: CA-OTSUKA-2016_030295

PATIENT
  Age: 38 Year
  Sex: Male
  Weight: 112 kg

DRUGS (3)
  1. JINARC [Suspect]
     Active Substance: TOLVAPTAN
     Dosage: 60, QD (DOSE INCREASED)
     Route: 065
  2. JINARC [Suspect]
     Active Substance: TOLVAPTAN
     Indication: CONGENITAL CYSTIC KIDNEY DISEASE
     Dosage: UNK
     Route: 065
  3. JINARC [Suspect]
     Active Substance: TOLVAPTAN
     Dosage: 30, QD (DOSE INCREASED)
     Route: 065

REACTIONS (2)
  - Aspartate aminotransferase increased [Recovered/Resolved]
  - Alanine aminotransferase increased [Recovered/Resolved]

NARRATIVE: CASE EVENT DATE: 20161221
